FAERS Safety Report 10041064 (Version 3)
Quarter: 2014Q2

REPORT INFORMATION
  Report Type: Spontaneous
  Country: US (occurrence: US)
  Receive Date: 20140327
  Receipt Date: 20140515
  Transmission Date: 20141212
  Serious: Yes (Death, Hospitalization)
  Sender: FDA-Public Use
  Company Number: US-PFIZER INC-2014086022

PATIENT
  Age: 44 Year
  Sex: Male

DRUGS (1)
  1. XALKORI [Suspect]
     Indication: NON-SMALL CELL LUNG CANCER
     Dosage: 200 MG, 2X/DAY
     Route: 048
     Dates: start: 20120426, end: 20140316

REACTIONS (4)
  - Disease progression [Fatal]
  - Non-small cell lung cancer [Fatal]
  - Neurosis [Unknown]
  - Asthenia [Unknown]
